FAERS Safety Report 21898749 (Version 1)
Quarter: 2023Q1

REPORT INFORMATION
  Report Type: Spontaneous
  Country: US (occurrence: None)
  Receive Date: 20230120
  Receipt Date: 20230120
  Transmission Date: 20230417
  Serious: No
  Sender: FDA-Public Use
  Company Number: None

PATIENT
  Age: 81 Year
  Sex: Male

DRUGS (1)
  1. TALTZ [Suspect]
     Active Substance: IXEKIZUMAB
     Indication: Psoriasis
     Dosage: INJECT 80MG (1 PEN) SUBCUTANEOUSLY EVERY 4 WEEKS AS DIRECTED    ?
     Route: 058
     Dates: start: 201912

REACTIONS (2)
  - COVID-19 [None]
  - Therapy interrupted [None]
